FAERS Safety Report 8160336-8 (Version None)
Quarter: 2012Q1

REPORT INFORMATION
  Report Type: 
  Country: None (occurrence: None)
  Receive Date: 20120223
  Receipt Date: 20120213
  Transmission Date: 20120608
  Serious: Yes (Life-Threatening, Hospitalization)
  Sender: FDA-Public Use
  Company Number: DE-EISAI INC-E2020-10216-SPO-DE

PATIENT
  Age: 82 Year
  Sex: Female

DRUGS (10)
  1. RASILEZ [Concomitant]
     Indication: HYPERTONIA
     Dosage: 150 MG UNKNOWN
     Route: 048
  2. NOOTROP [Concomitant]
     Indication: PREMEDICATION
     Dosage: 1200 MG UNKNOWN
     Route: 048
  3. ARICEPT [Suspect]
     Indication: DEMENTIA
     Route: 048
     Dates: start: 20111220, end: 20111220
  4. AMITRIPTYLINE HCL [Concomitant]
     Dates: end: 20111209
  5. ALUPENT [Concomitant]
     Dosage: UNKNOWN
     Dates: end: 20111201
  6. AMLODIPINE [Concomitant]
     Indication: HYPERTONIA
     Dosage: 5 MG UNKNOWN
  7. TRIAMTERENE AND HYDROCHLOROTHIAZIDE [Concomitant]
     Indication: HYPERTONIA
     Dosage: 50/25 MG UNKNOWN
     Route: 048
  8. IRBESARTAN [Concomitant]
     Indication: HYPERTONIA
     Dosage: 300 MG UNKNOWN
     Route: 048
  9. METOPROLOLE [Concomitant]
     Indication: HYPERTONIA
     Dosage: 50 MG UNKNOWN
     Route: 048
  10. LIBRIUM [Concomitant]
     Indication: INSOMNIA

REACTIONS (6)
  - SINUS BRADYCARDIA [None]
  - SOMNOLENCE [None]
  - LOSS OF CONSCIOUSNESS [None]
  - VOMITING [None]
  - NAUSEA [None]
  - CONVULSION [None]
